FAERS Safety Report 5386473-9 (Version None)
Quarter: 2007Q3

REPORT INFORMATION
  Report Type: 
  Country: None (occurrence: None)
  Receive Date: 20070710
  Receipt Date: 20070701
  Transmission Date: 20080115
  Serious: Yes (Other)
  Sender: FDA-Public Use
  Company Number: 163-21880-07070072

PATIENT

DRUGS (1)
  1. REVLIMID [Suspect]
     Indication: MYELODYSPLASTIC SYNDROME
     Dosage: 5 MG/M2, QD ON DAYS 1-21, ORAL
     Route: 048
     Dates: start: 20060908

REACTIONS (14)
  - ALANINE AMINOTRANSFERASE ABNORMAL [None]
  - ASPARTATE AMINOTRANSFERASE ABNORMAL [None]
  - CONTUSION [None]
  - HAEMOGLOBIN ABNORMAL [None]
  - HAEMORRHAGE URINARY TRACT [None]
  - HYPERCALCAEMIA [None]
  - HYPOMAGNESAEMIA [None]
  - HYPOPHOSPHATAEMIA [None]
  - MUCOSAL INFECTION [None]
  - MUCOSAL INFLAMMATION [None]
  - OEDEMA PERIPHERAL [None]
  - SKIN HYPERPIGMENTATION [None]
  - STOMATITIS [None]
  - THROMBOCYTOPENIA [None]
